FAERS Safety Report 26114338 (Version 1)
Quarter: 2025Q4

REPORT INFORMATION
  Report Type: Spontaneous
  Country: US (occurrence: US)
  Receive Date: 20251202
  Receipt Date: 20251202
  Transmission Date: 20260118
  Serious: Yes (Other)
  Sender: NEUROCRINE BIOSCIENCES
  Company Number: US-NEUROCRINE BIOSCIENCES INC.-2025NBI15704

PATIENT

DRUGS (2)
  1. INGREZZA [Suspect]
     Active Substance: VALBENAZINE DITOSYLATE
     Indication: Tardive dyskinesia
     Dosage: 80 MILLIGRAM, QD (2 CAPSULES OF 40 MG DAILY)
     Route: 065
  2. INGREZZA [Suspect]
     Active Substance: VALBENAZINE DITOSYLATE
     Dosage: 40 MILLIGRAM, UNKNOWN
     Route: 065

REACTIONS (11)
  - Suicidal ideation [Recovered/Resolved]
  - Panic attack [Recovered/Resolved]
  - Diarrhoea [Recovered/Resolved]
  - Derealisation [Unknown]
  - Feeling of despair [Unknown]
  - Eating disorder [Unknown]
  - Psychomotor hyperactivity [Unknown]
  - Dyspepsia [Unknown]
  - Anhedonia [Unknown]
  - Vomiting [Recovered/Resolved]
  - Dizziness [Unknown]
